FAERS Safety Report 9066363 (Version 1)
Quarter: 2013Q1

REPORT INFORMATION
  Report Type: Report from Study
  Country: US (occurrence: US)
  Receive Date: 20130131
  Receipt Date: 20130131
  Transmission Date: 20140127
  Serious: No
  Sender: FDA-Public Use
  Company Number: US-ABBOTT-12P-163-1007571-00

PATIENT
  Age: 33 Year
  Sex: Female

DRUGS (7)
  1. HUMIRA [Suspect]
     Indication: RHEUMATOID ARTHRITIS
     Dates: start: 201005
  2. HUMIRA [Suspect]
     Dates: start: 201206
  3. PREDNISONE [Concomitant]
     Indication: ARTHRITIS
     Route: 048
  4. HYDROCODONE [Concomitant]
     Indication: PAIN
  5. SYNTHROID [Concomitant]
     Indication: BASEDOW^S DISEASE
  6. SYMBICORT [Concomitant]
     Indication: ASTHMA
  7. TOVIAZ [Concomitant]
     Indication: BLADDER SPASM
     Dates: start: 2011

REACTIONS (1)
  - Pain [Not Recovered/Not Resolved]
